FAERS Safety Report 14039321 (Version 1)
Quarter: 2017Q4

REPORT INFORMATION
  Report Type: Spontaneous
  Country: DE (occurrence: DE)
  Receive Date: 20171004
  Receipt Date: 20171004
  Transmission Date: 20180321
  Serious: Yes (Hospitalization)
  Sender: FDA-Public Use
  Company Number: DE-BAYER-2017-184072

PATIENT
  Age: 29 Year
  Sex: Female

DRUGS (1)
  1. MIRENA [Suspect]
     Active Substance: LEVONORGESTREL
     Indication: INTRA-UTERINE CONTRACEPTIVE DEVICE
     Dosage: UNK
     Dates: start: 20120914, end: 20170828

REACTIONS (5)
  - Anxiety disorder [None]
  - Arthralgia [Recovered/Resolved]
  - Depression [None]
  - Back pain [Recovering/Resolving]
  - Panic disorder [None]

NARRATIVE: CASE EVENT DATE: 20150108
